FAERS Safety Report 5482036-5 (Version None)
Quarter: 2007Q4

REPORT INFORMATION
  Report Type: 
  Country: None (occurrence: None)
  Receive Date: 20071004
  Receipt Date: 20070921
  Transmission Date: 20080405
  Serious: Yes (Other)
  Sender: FDA-Public Use
  Company Number: 2007RR-08423

PATIENT
  Age: 16 Year
  Sex: Female

DRUGS (1)
  1. TESCO (LORATADINE) UNKNOWN [Suspect]
     Dosage: 10 MG, QD, ORAL
     Route: 048
     Dates: start: 20070608, end: 20070608

REACTIONS (3)
  - CONVULSION [None]
  - FALL [None]
  - LOSS OF CONSCIOUSNESS [None]
